FAERS Safety Report 11147363 (Version 1)
Quarter: 2015Q2

REPORT INFORMATION
  Report Type: Spontaneous
  Country: BR (occurrence: BR)
  Receive Date: 20150528
  Receipt Date: 20150528
  Transmission Date: 20150821
  Serious: Yes (Other)
  Sender: FDA-Public Use
  Company Number: BR-ROCHE-1583168

PATIENT
  Age: 37 Year
  Sex: Female
  Weight: 112 kg

DRUGS (12)
  1. BROMOPRIDE [Concomitant]
     Active Substance: BROMOPRIDE
     Route: 065
  2. METHOTREXATE [Concomitant]
     Active Substance: METHOTREXATE
     Dosage: 5 TABLETS ADMN IN THE MORNING AND 5 AT NIGHT
     Route: 065
  3. CYCLOBENZAPRINE [Concomitant]
     Active Substance: CYCLOBENZAPRINE
     Route: 065
  4. CALCIUM CARBONATE. [Concomitant]
     Active Substance: CALCIUM CARBONATE
     Route: 065
  5. ACTEMRA [Suspect]
     Active Substance: TOCILIZUMAB
     Indication: RHEUMATOID ARTHRITIS
     Route: 042
     Dates: start: 20150112
  6. FOLIC ACID. [Concomitant]
     Active Substance: FOLIC ACID
     Route: 065
  7. NAPROXEN. [Concomitant]
     Active Substance: NAPROXEN
     Route: 065
  8. OMEPRAZOLE. [Concomitant]
     Active Substance: OMEPRAZOLE
     Route: 065
  9. SIMVASTATIN. [Concomitant]
     Active Substance: SIMVASTATIN
     Route: 065
  10. PREDNISONE. [Concomitant]
     Active Substance: PREDNISONE
     Route: 065
  11. VITAMIN D3 [Concomitant]
     Active Substance: CHOLECALCIFEROL
     Dosage: 200 IU PER DROP
     Route: 065
  12. ENALAPRIL [Concomitant]
     Active Substance: ENALAPRIL
     Route: 065

REACTIONS (6)
  - Hypoaesthesia [Recovered/Resolved]
  - Dyspnoea [Recovered/Resolved]
  - Urinary tract infection [Unknown]
  - Blood pressure increased [Recovered/Resolved]
  - Chills [Recovered/Resolved]
  - Sinus tachycardia [Recovered/Resolved]

NARRATIVE: CASE EVENT DATE: 20150327
